FAERS Safety Report 25833635 (Version 2)
Quarter: 2025Q3

REPORT INFORMATION
  Report Type: Spontaneous
  Country: US (occurrence: US)
  Receive Date: 20250922
  Receipt Date: 20250928
  Transmission Date: 20251020
  Serious: Yes (Hospitalization)
  Sender: BIOGEN
  Company Number: US-BIOGEN-2025BI01324440

PATIENT
  Age: 44 Year
  Sex: Female

DRUGS (2)
  1. TYSABRI [Suspect]
     Active Substance: NATALIZUMAB
     Indication: Multiple sclerosis
     Route: 050
     Dates: start: 20140131, end: 20250110
  2. TYSABRI [Suspect]
     Active Substance: NATALIZUMAB
     Route: 050
     Dates: start: 20250917

REACTIONS (4)
  - Multiple sclerosis relapse [Unknown]
  - Treatment noncompliance [Unknown]
  - Psychomotor hyperactivity [Unknown]
  - Fatigue [Unknown]

NARRATIVE: CASE EVENT DATE: 20250110
